FAERS Safety Report 9645368 (Version 3)
Quarter: 2013Q4

REPORT INFORMATION
  Report Type: Spontaneous
  Country: JP (occurrence: None)
  Receive Date: 20131023
  Receipt Date: 20131115
  Transmission Date: 20140711
  Serious: Yes (Hospitalization, Other)
  Sender: FDA-Public Use
  Company Number: ADR-2013-01911

PATIENT
  Age: 3 Year
  Sex: Female
  Weight: 13 kg

DRUGS (6)
  1. GABALON [Suspect]
     Indication: ENCEPHALITIS
     Dosage: INTRATHECAL
  2. LIORESAL [Suspect]
     Route: 048
  3. SERENACE GRANULES [Concomitant]
  4. DEPAKENE GRANULES [Concomitant]
  5. PHENOBARB POWDER [Concomitant]
  6. 1% LIDOCAINE [Concomitant]

REACTIONS (3)
  - Blood pressure decreased [None]
  - Tongue disorder [None]
  - Rhinorrhoea [None]
